FAERS Safety Report 22344224 (Version 1)
Quarter: 2023Q2

REPORT INFORMATION
  Report Type: Spontaneous
  Country: FR (occurrence: FR)
  Receive Date: 20230519
  Receipt Date: 20230519
  Transmission Date: 20230721
  Serious: Yes (Hospitalization)
  Sender: FDA-Public Use
  Company Number: FR-AFSSAPS-SE2023000202

PATIENT
  Age: 73 Year
  Sex: Female
  Weight: 88 kg

DRUGS (4)
  1. ACETAMINOPHEN [Suspect]
     Active Substance: ACETAMINOPHEN
     Indication: Pain
     Dosage: UNK
     Route: 048
     Dates: start: 20221223, end: 20230110
  2. ACUPAN [Suspect]
     Active Substance: NEFOPAM HYDROCHLORIDE
     Indication: Pain
     Dosage: SOLUTION FOR INJECTION
     Route: 048
     Dates: start: 20221223, end: 202301
  3. AMITRIPTYLINE HYDROCHLORIDE [Suspect]
     Active Substance: AMITRIPTYLINE HYDROCHLORIDE
     Indication: Fibromyalgia
     Dosage: 25 MG FILM-COATED TABLET
     Route: 048
     Dates: start: 20221213, end: 20230108
  4. PREDNISONE [Suspect]
     Active Substance: PREDNISONE
     Indication: Joint swelling
     Dosage: 20 MILLIGRAM, DAILY, SCORED TABLET
     Route: 048
     Dates: start: 20230102, end: 20230103

REACTIONS (1)
  - Hepatic cytolysis [Recovered/Resolved]

NARRATIVE: CASE EVENT DATE: 20230109
